FAERS Safety Report 9783880 (Version 1)
Quarter: 2013Q4

REPORT INFORMATION
  Report Type: Spontaneous
  Country: US (occurrence: US)
  Receive Date: 20131226
  Receipt Date: 20131226
  Transmission Date: 20140711
  Serious: Yes (Other)
  Sender: FDA-Public Use
  Company Number: US-GE HEALTHCARE MEDICAL DIAGNOSTICS-OSCN-PR-1312S-0155

PATIENT
  Age: 48 Year
  Sex: Female

DRUGS (1)
  1. OMNISCAN [Suspect]
     Indication: DEPRESSED LEVEL OF CONSCIOUSNESS
     Dates: start: 20080102, end: 20080102

REACTIONS (6)
  - Nephrogenic systemic fibrosis [Not Recovered/Not Resolved]
  - Oedema peripheral [Recovered/Resolved]
  - Skin hypertrophy [Recovered/Resolved]
  - Pruritus [Recovered/Resolved]
  - Skin irritation [Recovered/Resolved]
  - Papule [Recovered/Resolved]
